FAERS Safety Report 4578246-1 (Version None)
Quarter: 2005Q1

REPORT INFORMATION
  Report Type: 
  Country: None (occurrence: None)
  Receive Date: 20050209
  Receipt Date: 20050201
  Transmission Date: 20050727
  Serious: Yes (Death, Hospitalization)
  Sender: FDA-Public Use
  Company Number: 2005US000156

PATIENT
  Age: 34 Year
  Sex: Female

DRUGS (2)
  1. PROGRAF [Suspect]
     Indication: PROPHYLAXIS AGAINST TRANSPLANT REJECTION
     Dosage: 4.00 MG, BID
  2. PREDNISONE [Concomitant]

REACTIONS (3)
  - LIVER TRANSPLANT REJECTION [None]
  - PNEUMONIA LEGIONELLA [None]
  - VOLVULUS OF BOWEL [None]
